FAERS Safety Report 8197329-0 (Version None)
Quarter: 2012Q1

REPORT INFORMATION
  Report Type: 
  Country: None (occurrence: None)
  Receive Date: 20120309
  Receipt Date: 20120302
  Transmission Date: 20120608
  Serious: Yes (Hospitalization)
  Sender: FDA-Public Use
  Company Number: FR-BAYER-2012-021664

PATIENT
  Age: 50 Year
  Sex: Female

DRUGS (1)
  1. MOXIFLOXACIN HCL [Suspect]
     Indication: INFECTION
     Dosage: UNK
     Route: 048
     Dates: start: 20100101

REACTIONS (4)
  - TREMOR [None]
  - ASTHENIA [None]
  - PRURITUS [None]
  - DERMATITIS EXFOLIATIVE [None]
